FAERS Safety Report 7546553-6 (Version None)
Quarter: 2011Q2

REPORT INFORMATION
  Report Type: 
  Country: None (occurrence: None)
  Receive Date: 20110614
  Receipt Date: 20110601
  Transmission Date: 20111010
  Serious: Yes (Death, Hospitalization)
  Sender: FDA-Public Use
  Company Number: TR-ACTELION-A-CH2011-49783

PATIENT
  Age: 1 Year
  Sex: Male
  Weight: 5 kg

DRUGS (1)
  1. TRACLEER [Suspect]
     Indication: PULMONARY ARTERIAL HYPERTENSION
     Dosage: 31.25 MG, UNK
     Route: 048

REACTIONS (4)
  - LUNG INFECTION [None]
  - CARDIAC FAILURE CHRONIC [None]
  - SEPTIC SHOCK [None]
  - PULMONARY ARTERIAL HYPERTENSION [None]
